FAERS Safety Report 4854903-4 (Version None)
Quarter: 2005Q4

REPORT INFORMATION
  Report Type: 
  Country: None (occurrence: None)
  Receive Date: 20051215
  Receipt Date: 20051024
  Transmission Date: 20060501
  Serious: Yes (Hospitalization)
  Sender: FDA-Public Use
  Company Number: PHEH2005US11850

PATIENT
  Age: 59 Year
  Sex: Female
  Weight: 80.272 kg

DRUGS (12)
  1. ZELNORM [Suspect]
     Indication: CONSTIPATION
     Dosage: 6 MG, BID
     Route: 048
     Dates: start: 20050301, end: 20051017
  2. PRILOSEC [Concomitant]
     Indication: GASTROOESOPHAGEAL REFLUX DISEASE
     Dosage: 40 MG, BID
  3. POTASSIUM [Concomitant]
  4. LEVOXYL [Concomitant]
     Indication: THYROID DISORDER
     Dosage: 0.088 MG, UNK
  5. PREMARIN [Concomitant]
     Indication: MENOPAUSE
     Dosage: 0.3 MG, UNK
  6. MEDROXYPROGESTERONE [Concomitant]
     Indication: MENOPAUSE
     Dosage: 5 MG, UNK
  7. ZOLOFT [Concomitant]
     Dosage: 25 MG, QD
     Dates: start: 20040101
  8. TRILISATE [Concomitant]
     Dosage: 500 MG, BID
  9. XANAX [Concomitant]
     Indication: OESOPHAGEAL SPASM
     Dosage: 0.5 MG, PRN
  10. SANCTURA [Concomitant]
     Indication: ARTHRITIS
     Dosage: 20 MG, UNK
     Dates: start: 20050101
  11. LIBRAX [Concomitant]
     Indication: IRRITABLE BOWEL SYNDROME
     Dates: start: 20050101
  12. GLYCERYL TRINITRATE [Concomitant]

REACTIONS (7)
  - ABDOMINAL DISTENSION [None]
  - DECREASED APPETITE [None]
  - DYSPNOEA [None]
  - FEELING ABNORMAL [None]
  - MIGRAINE [None]
  - OEDEMA PERIPHERAL [None]
  - WEIGHT INCREASED [None]
